FAERS Safety Report 8478643 (Version 2)
Quarter: 2013Q1

REPORT INFORMATION
  Report Type: Spontaneous
  Country: IT (occurrence: None)
  Receive Date: 20120319
  Receipt Date: 20130131
  Transmission Date: 20140127
  Serious: Yes (Life-Threatening)
  Sender: FDA-Public Use
  Company Number: GER/ITL/12/0023416

PATIENT
  Age: 91 Year
  Sex: Male

DRUGS (2)
  1. CLOPIDOGREL [Suspect]
     Indication: MYOCARDIAL ISCHAEMIA
     Dosage: 75 MG
     Dates: start: 20120101, end: 20120130
  2. ASA (ACETYLSALICYLIC ACID) [Suspect]
     Indication: MYOCARDIAL ISCHAEMIA

REACTIONS (2)
  - Coronary artery restenosis [None]
  - Acute myocardial infarction [None]
